FAERS Safety Report 17525826 (Version 2)
Quarter: 2020Q1

REPORT INFORMATION
  Report Type: Spontaneous
  Country: PL (occurrence: PL)
  Receive Date: 20200310
  Receipt Date: 20200313
  Transmission Date: 20200409
  Serious: Yes (Other)
  Sender: FDA-Public Use
  Company Number: PL-PFIZER INC-2020068772

PATIENT
  Age: 25 Year
  Sex: Female

DRUGS (4)
  1. LEVETIRACETAM. [Suspect]
     Active Substance: LEVETIRACETAM
     Dosage: 3 G, DAILY
     Route: 065
  2. LAMOTRIGINE. [Concomitant]
     Active Substance: LAMOTRIGINE
     Dosage: GRADUALLY INCREASING DOSES UP TO 250 MG PER DAY
  3. LAMOTRIGINE. [Concomitant]
     Active Substance: LAMOTRIGINE
     Indication: SEIZURE
     Dosage: 300 MG, DAILY
  4. LACOSAMIDE. [Suspect]
     Active Substance: LACOSAMIDE
     Indication: EPILEPSY
     Dosage: UNK, DOSES GRADUALLY INCREASING TO 400 MG PER DAY
     Route: 065

REACTIONS (4)
  - Drug ineffective [Unknown]
  - Dizziness [Unknown]
  - Seizure [Unknown]
  - Disturbance in attention [Recovered/Resolved]
